FAERS Safety Report 4623845-1 (Version None)
Quarter: 2005Q1

REPORT INFORMATION
  Report Type: 
  Country: None (occurrence: None)
  Receive Date: 20050331
  Receipt Date: 20050323
  Transmission Date: 20050727
  Serious: Yes (Death)
  Sender: FDA-Public Use
  Company Number: 200512341US

PATIENT
  Sex: Female

DRUGS (2)
  1. KETEK [Suspect]
     Indication: BRONCHITIS ACUTE
     Route: 048
     Dates: start: 20050218, end: 20050218
  2. MESTINON [Concomitant]
     Indication: OCULAR MYASTHENIA
     Dosage: DOSE: UNK

REACTIONS (7)
  - ACUTE RESPIRATORY FAILURE [None]
  - ANAPHYLACTIC REACTION [None]
  - CIRCULATORY COLLAPSE [None]
  - COMA [None]
  - HYPOKALAEMIA [None]
  - SWELLING FACE [None]
  - SWOLLEN TONGUE [None]
